FAERS Safety Report 8253582-6 (Version None)
Quarter: 2012Q2

REPORT INFORMATION
  Report Type: 
  Country: None (occurrence: None)
  Receive Date: 20120402
  Receipt Date: 20120307
  Transmission Date: 20120825
  Serious: No
  Sender: FDA-Public Use
  Company Number: US-AMGEN-USASP2012015130

PATIENT
  Age: 35 Year
  Sex: Male

DRUGS (3)
  1. METFORMIN HCL [Concomitant]
     Dosage: UNK
  2. GLIPIZIDE [Concomitant]
     Dosage: UNK
  3. ENBREL [Suspect]
     Indication: PSORIASIS
     Dosage: UNK UNK, 2 TIMES/WK
     Dates: start: 20111201

REACTIONS (1)
  - CELLULITIS [None]
